FAERS Safety Report 10587714 (Version 1)
Quarter: 2014Q4

REPORT INFORMATION
  Report Type: Spontaneous
  Country: IT (occurrence: IT)
  Receive Date: 20141117
  Receipt Date: 20141117
  Transmission Date: 20150529
  Serious: Yes (Hospitalization, Other)
  Sender: FDA-Public Use
  Company Number: IT-PFIZER INC-2014314196

PATIENT
  Age: 68 Year
  Sex: Female

DRUGS (4)
  1. LASIX [Suspect]
     Active Substance: FUROSEMIDE
     Dosage: 375 MG, DAILY
     Route: 048
  2. ATENOLOL. [Suspect]
     Active Substance: ATENOLOL
     Indication: HYPERTENSION
     Dosage: 100 MG, DAILY
     Route: 048
     Dates: start: 20100101, end: 20140511
  3. BENTELAN [Concomitant]
     Active Substance: BETAMETHASONE SODIUM PHOSPHATE
     Dosage: 1 MG, UNK
  4. METHOTREXATE [Concomitant]
     Active Substance: METHOTREXATE
     Dosage: UNK

REACTIONS (3)
  - Syncope [Recovering/Resolving]
  - Orthostatic hypotension [Recovering/Resolving]
  - Interstitial lung disease [Unknown]

NARRATIVE: CASE EVENT DATE: 20140511
